FAERS Safety Report 6794082-X (Version None)
Quarter: 2010Q2

REPORT INFORMATION
  Report Type: 
  Country: None (occurrence: None)
  Receive Date: 20100624
  Receipt Date: 20090916
  Transmission Date: 20101027
  Serious: Yes (Life-Threatening, Hospitalization)
  Sender: FDA-Public Use
  Company Number: TW-PFIZER INC-2009270092

PATIENT
  Age: 29 Year
  Sex: Male

DRUGS (1)
  1. UNASYN [Suspect]
     Indication: NECROTISING FASCIITIS
     Dosage: 1.5 G, 1X/DAY
     Route: 042
     Dates: start: 20090902, end: 20090903

REACTIONS (2)
  - SEPSIS [None]
  - STEVENS-JOHNSON SYNDROME [None]
